FAERS Safety Report 7295901-3 (Version None)
Quarter: 2011Q1

REPORT INFORMATION
  Report Type: 
  Country: None (occurrence: None)
  Receive Date: 20110211
  Receipt Date: 20110211
  Transmission Date: 20110831
  Serious: Yes (Death, Hospitalization, Disabling)
  Sender: FDA-Public Use
  Company Number: None

PATIENT
  Age: 79 Year
  Sex: Female
  Weight: 34.1 kg

DRUGS (1)
  1. ZOCOR [Suspect]
     Dates: start: 20101029, end: 20101230

REACTIONS (2)
  - CONVULSION [None]
  - HEMIPLEGIA [None]
